FAERS Safety Report 6722727-9 (Version None)
Quarter: 2010Q2

REPORT INFORMATION
  Report Type: 
  Country: None (occurrence: None)
  Receive Date: 20100512
  Receipt Date: 20100507
  Transmission Date: 20101027
  Serious: Yes (Hospitalization)
  Sender: FDA-Public Use
  Company Number: FR-MERCK-1002FRA00022

PATIENT
  Age: 53 Year
  Sex: Male

DRUGS (2)
  1. NOROXIN [Suspect]
     Indication: PROSTATITIS
     Route: 048
     Dates: start: 20100103, end: 20100126
  2. ASPIRIN [Concomitant]
     Indication: PAIN
     Route: 048

REACTIONS (4)
  - ARTHRALGIA [None]
  - ERYTHEMA NODOSUM [None]
  - MYALGIA [None]
  - TOXIC SKIN ERUPTION [None]
